FAERS Safety Report 9188803 (Version 2)
Quarter: 2013Q2

REPORT INFORMATION
  Report Type: Spontaneous
  Country: US (occurrence: US)
  Receive Date: 20130326
  Receipt Date: 20130410
  Transmission Date: 20140414
  Serious: Yes (Hospitalization)
  Sender: FDA-Public Use
  Company Number: US-B.I. PHARMACEUTICALS,INC./RIDGEFIELD-2013-BI-07372BP

PATIENT
  Age: 63 Year
  Sex: Female

DRUGS (10)
  1. COMBIVENT [Suspect]
     Indication: CHRONIC OBSTRUCTIVE PULMONARY DISEASE
     Route: 055
     Dates: start: 2005
  2. HEART MEDICATION [Concomitant]
     Route: 048
  3. LORCET [Concomitant]
     Route: 048
  4. FLONASE [Concomitant]
     Route: 045
  5. ADVAIR [Concomitant]
     Route: 055
  6. POTASSIUM [Concomitant]
     Route: 048
  7. LASIX [Concomitant]
     Route: 048
  8. OXYGEN [Concomitant]
     Indication: OXYGEN SUPPLEMENTATION
  9. DIGOXIN [Concomitant]
     Dosage: 0.25 MG
  10. LOPRESSOR [Concomitant]

REACTIONS (3)
  - Pneumonia [Not Recovered/Not Resolved]
  - Pneumonia [Recovered/Resolved]
  - Glossodynia [Recovered/Resolved]
